FAERS Safety Report 10441547 (Version 1)
Quarter: 2014Q3

REPORT INFORMATION
  Report Type: Spontaneous
  Country: US (occurrence: None)
  Receive Date: 20140908
  Receipt Date: 20140908
  Transmission Date: 20150326
  Serious: Yes (Hospitalization, Disabling, Other)
  Sender: FDA-Public Use
  Company Number: None

PATIENT
  Age: 48 Year
  Sex: Female
  Weight: 111.13 kg

DRUGS (1)
  1. LEVAQUIN [Suspect]
     Active Substance: LEVOFLOXACIN
     Indication: INCISION SITE INFECTION
     Dosage: 1 PILL X1 DAILY, ONCE DAILY, TAKEN BY MOUTH
     Route: 048
     Dates: start: 20140708, end: 20140718

REACTIONS (15)
  - Diarrhoea [None]
  - Fungal infection [None]
  - Myocardial infarction [None]
  - Dizziness [None]
  - Nausea [None]
  - Asthenia [None]
  - Fatigue [None]
  - Dyspnoea [None]
  - Abdominal distension [None]
  - Chest pain [None]
  - Incision site vesicles [None]
  - Blood glucose increased [None]
  - Presyncope [None]
  - Pain in extremity [None]
  - Peripheral swelling [None]

NARRATIVE: CASE EVENT DATE: 20140718
